FAERS Safety Report 5278974-9 (Version None)
Quarter: 2007Q1

REPORT INFORMATION
  Report Type: 
  Country: None (occurrence: None)
  Receive Date: 20070328
  Receipt Date: 20061025
  Transmission Date: 20070707
  Serious: No
  Sender: FDA-Public Use
  Company Number: US-AMGEN-KDL198148

PATIENT
  Sex: Female

DRUGS (7)
  1. NEULASTA [Suspect]
     Indication: CHEMOTHERAPY
     Route: 058
     Dates: start: 20060501
  2. DEXAMETHASONE [Concomitant]
     Route: 065
  3. BENADRYL [Concomitant]
     Route: 065
  4. SYNTHROID [Concomitant]
     Route: 065
  5. ADRIAMYCIN PFS [Concomitant]
     Route: 065
     Dates: start: 20060101
  6. CYTOXAN [Concomitant]
     Route: 065
     Dates: start: 20060101
  7. TAXOTERE [Concomitant]
     Route: 065
     Dates: start: 20060101

REACTIONS (2)
  - BONE PAIN [None]
  - INJECTION SITE PAIN [None]
